FAERS Safety Report 21738944 (Version 1)
Quarter: 2022Q4

REPORT INFORMATION
  Report Type: Spontaneous
  Country: US (occurrence: US)
  Receive Date: 20221216
  Receipt Date: 20221216
  Transmission Date: 20230113
  Serious: No
  Sender: FDA-Public Use
  Company Number: US-SA-SAC20221214000496

PATIENT
  Age: 24 Year
  Sex: Female

DRUGS (1)
  1. DUPIXENT [Suspect]
     Active Substance: DUPILUMAB
     Indication: Dermatitis atopic
     Dosage: 300 MG QOW
     Route: 058
     Dates: start: 20220714

REACTIONS (9)
  - Asthma [Unknown]
  - Impaired quality of life [Unknown]
  - Infection [Unknown]
  - Eye irritation [Unknown]
  - Eczema [Unknown]
  - Rash [Unknown]
  - Eye swelling [Unknown]
  - Discomfort [Unknown]
  - Sleep disorder [Unknown]
